FAERS Safety Report 4266798-0 (Version None)
Quarter: 2004Q1

REPORT INFORMATION
  Report Type: 
  Country: None (occurrence: None)
  Receive Date: 20040108
  Receipt Date: 20001215
  Transmission Date: 20041129
  Serious: Yes (Other)
  Sender: FDA-Public Use
  Company Number: US-ROCHE-251254

PATIENT
  Sex: Male
  Weight: 4.1 kg

DRUGS (3)
  1. ACCUTANE [Suspect]
     Dates: start: 20000915, end: 20001203
  2. IMITREX [Concomitant]
     Dates: end: 20001115
  3. ASPIRIN [Concomitant]

REACTIONS (10)
  - ANIMAL BITE [None]
  - BLOOD BILIRUBIN INCREASED [None]
  - CAESAREAN SECTION [None]
  - FOETAL GROWTH RETARDATION [None]
  - INJURY [None]
  - JAUNDICE NEONATAL [None]
  - LACERATION [None]
  - MATERNAL DRUGS AFFECTING FOETUS [None]
  - MECONIUM IN AMNIOTIC FLUID [None]
  - NEONATAL RESPIRATORY DISTRESS SYNDROME [None]
